FAERS Safety Report 9441249 (Version 1)
Quarter: 2013Q3

REPORT INFORMATION
  Report Type: Spontaneous
  Country: US (occurrence: US)
  Receive Date: 20130805
  Receipt Date: 20130805
  Transmission Date: 20140515
  Serious: Yes (Hospitalization, Other)
  Sender: FDA-Public Use
  Company Number: US-PFIZER INC-2013223186

PATIENT
  Age: 54 Year
  Sex: Female
  Weight: 56.69 kg

DRUGS (11)
  1. SYNERCID [Suspect]
     Indication: ENDOCARDITIS
     Dosage: UNK, EVERY 8 HOURS
     Dates: start: 20130726
  2. SYNERCID [Suspect]
     Indication: OSTEOMYELITIS
  3. ZYVOX [Suspect]
     Indication: ENDOCARDITIS
     Dosage: UNK
     Dates: start: 20130711, end: 20130726
  4. ZYVOX [Suspect]
     Indication: OSTEOMYELITIS
  5. VANCOMYCIN HCL [Suspect]
     Indication: ENDOCARDITIS
     Dosage: 1000 ML, 2X/DAY
     Dates: start: 20130622, end: 20130703
  6. VANCOMYCIN HCL [Suspect]
     Indication: OSTEOMYELITIS
  7. ROCEPHIN [Suspect]
     Indication: ENDOCARDITIS
     Dosage: UNK
     Dates: start: 20130708, end: 20130711
  8. ROCEPHIN [Suspect]
     Indication: OSTEOMYELITIS
  9. DAPTOMYCIN [Suspect]
     Indication: ENDOCARDITIS
     Dosage: UNK, 2X/DAY
     Dates: start: 20130703, end: 20130708
  10. DAPTOMYCIN [Suspect]
     Indication: OSTEOMYELITIS
  11. HEPARIN [Concomitant]
     Dosage: UNK

REACTIONS (11)
  - Rash generalised [Unknown]
  - Platelet count decreased [Recovered/Resolved]
  - White blood cell count increased [Unknown]
  - Cellulitis [Unknown]
  - Pyrexia [Unknown]
  - Anaemia [Unknown]
  - Gait disturbance [Unknown]
  - Rash [Unknown]
  - Drug administration error [Unknown]
  - Off label use [Unknown]
  - Drug ineffective [Unknown]
